FAERS Safety Report 13909320 (Version 1)
Quarter: 2017Q3

REPORT INFORMATION
  Report Type: Report from Study
  Country: CA (occurrence: CA)
  Receive Date: 20170828
  Receipt Date: 20170828
  Transmission Date: 20171127
  Serious: Yes (Hospitalization)
  Sender: FDA-Public Use
  Company Number: CA-TAKEDA-2017TUS017817

PATIENT
  Age: 30 Year
  Sex: Male

DRUGS (5)
  1. PURINETHOL [Concomitant]
     Active Substance: MERCAPTOPURINE
     Dosage: 50 MG, UNK
     Route: 048
     Dates: start: 20170609
  2. PURINETHOL [Concomitant]
     Active Substance: MERCAPTOPURINE
     Dosage: 75 MG, QD
     Route: 048
     Dates: start: 201602
  3. VEDOLIZUMAB [Suspect]
     Active Substance: VEDOLIZUMAB
     Indication: COLITIS ULCERATIVE
     Dosage: 300 MG, UNK
     Route: 042
     Dates: start: 20170718
  4. CYCLOSPORINE. [Concomitant]
     Active Substance: CYCLOSPORINE
     Dosage: 250 MG, BID
     Route: 048
  5. CORTISONE [Concomitant]
     Active Substance: CORTISONE\HYDROCORTISONE
     Dosage: UNK

REACTIONS (1)
  - Intestinal resection [Recovered/Resolved]

NARRATIVE: CASE EVENT DATE: 20170728
